FAERS Safety Report 8211134-8 (Version None)
Quarter: 2012Q1

REPORT INFORMATION
  Report Type: 
  Country: None (occurrence: None)
  Receive Date: 20120315
  Receipt Date: 20120304
  Transmission Date: 20120608
  Serious: Yes (Other)
  Sender: FDA-Public Use
  Company Number: US-SHIRE-ALL1-2012-01241

PATIENT
  Sex: Female
  Weight: 54.422 kg

DRUGS (6)
  1. LUVOX [Suspect]
     Indication: DEPRESSION
     Dosage: 150 MG, 1X/DAY:QD
     Route: 048
     Dates: start: 20120229, end: 20120302
  2. LAMICTAL [Concomitant]
     Indication: BIPOLAR DISORDER
     Dosage: 100 MG, 1X/DAY:QD
     Route: 048
     Dates: start: 20110101
  3. VITAMINS NOS [Concomitant]
     Indication: ROUTINE HEALTH MAINTENANCE
     Dosage: UNK, 1X/DAY:QD
     Route: 048
  4. ABILIFY [Concomitant]
     Indication: DEPRESSION
     Dosage: 5 MG, 1X/DAY:QD
     Route: 048
     Dates: start: 20110101
  5. VYVANSE [Suspect]
     Indication: ATTENTION DEFICIT/HYPERACTIVITY DISORDER
     Dosage: 70 MG, 1X/DAY:QD
     Route: 048
     Dates: start: 20110101
  6. PRISTIQ [Concomitant]
     Indication: DEPRESSION
     Dosage: 50 MG, 1X/DAY:QD
     Route: 048
     Dates: start: 20110101, end: 20120229

REACTIONS (5)
  - DRUG INTERACTION [None]
  - IMPETIGO [None]
  - SCRATCH [None]
  - CELLULITIS [None]
  - SEROTONIN SYNDROME [None]
